FAERS Safety Report 23471687 (Version 1)
Quarter: 2024Q1

REPORT INFORMATION
  Report Type: Spontaneous
  Country: CA (occurrence: CA)
  Receive Date: 20240202
  Receipt Date: 20240202
  Transmission Date: 20240410
  Serious: Yes (Hospitalization, Other)
  Sender: FDA-Public Use
  Company Number: CA-MYLANLABS-2024M1008724

PATIENT
  Sex: Male
  Weight: 63 kg

DRUGS (19)
  1. CLOZAPINE [Interacting]
     Active Substance: CLOZAPINE
     Indication: Product used for unknown indication
     Dosage: 2.5 MILLILITER, QD
     Route: 048
  2. FLUVOXAMINE [Interacting]
     Active Substance: FLUVOXAMINE
     Indication: Psychiatric care
     Dosage: 50 MILLIGRAM, QD (ONE EVERY 24 HOURS)
     Route: 048
  3. FLUVOXAMINE [Interacting]
     Active Substance: FLUVOXAMINE
     Dosage: 12.5 MILLIGRAM, QD (ONE EVERY 24 HOURS)
     Route: 048
  4. CLOZAPINE [Interacting]
     Active Substance: CLOZAPINE
     Indication: Psychiatric care
     Dosage: 100 MILLIGRAM, QD
     Route: 048
  5. CLOZAPINE [Interacting]
     Active Substance: CLOZAPINE
     Dosage: 75 MILLIGRAM, QD
     Route: 048
  6. CLOZAPINE [Interacting]
     Active Substance: CLOZAPINE
     Dosage: 100 MILLIGRAM (ONCE EVERY 24 HOURS)
     Route: 048
  7. LORAZEPAM [Interacting]
     Active Substance: LORAZEPAM
     Indication: Agitation
     Dosage: UNK (ONE EVERY 6 HOURS)
     Route: 030
  8. LORAZEPAM [Interacting]
     Active Substance: LORAZEPAM
     Indication: Agitation
     Dosage: UNK (ONE EVERY 6 HOURS)
     Route: 048
  9. LOXAPINE SUCCINATE [Interacting]
     Active Substance: LOXAPINE SUCCINATE
     Indication: Agitation
     Dosage: UNK (ONE EVERY 6 HOURS)
     Route: 048
  10. LOXAPINE SUCCINATE [Interacting]
     Active Substance: LOXAPINE SUCCINATE
     Indication: Agitation
     Dosage: UNK (ONE EVERY 6 HOURS)
     Route: 030
  11. BENZTROPINE MESYLATE [Interacting]
     Active Substance: BENZTROPINE MESYLATE
     Indication: Extrapyramidal disorder
     Dosage: UNK (3 EVERY ONE DAYS)
     Route: 048
  12. BENZTROPINE MESYLATE [Interacting]
     Active Substance: BENZTROPINE MESYLATE
     Indication: Extrapyramidal disorder
     Dosage: UNK (3 EVERY 1 DAYS)
     Route: 030
  13. PROPRANOLOL [Interacting]
     Active Substance: PROPRANOLOL HYDROCHLORIDE
     Indication: Product used for unknown indication
     Dosage: 10 MILLIGRAM (TWO EVERY ONE DAY)
     Route: 048
  14. QUETIAPINE FUMARATE [Suspect]
     Active Substance: QUETIAPINE FUMARATE
     Indication: Psychiatric care
     Dosage: 100 MILLIGRAM, QD
     Route: 048
  15. QUETIAPINE FUMARATE [Suspect]
     Active Substance: QUETIAPINE FUMARATE
     Indication: Psychiatric care
     Dosage: 500 MILLIGRAM, QD
     Route: 048
  16. QUETIAPINE FUMARATE [Suspect]
     Active Substance: QUETIAPINE FUMARATE
     Indication: Product used for unknown indication
     Dosage: 400 MILLIGRAM, QD
     Route: 048
  17. QUETIAPINE FUMARATE [Suspect]
     Active Substance: QUETIAPINE FUMARATE
     Indication: Psychiatric care
     Dosage: 450 MILLIGRAM, QD
     Route: 048
  18. BREXPIPRAZOLE [Concomitant]
     Active Substance: BREXPIPRAZOLE
     Indication: Psychiatric care
     Dosage: 1 MILLIGRAM (ONE EVERY 24 HOURS)
     Route: 048
  19. CLEARLAX [Concomitant]
     Active Substance: POLYETHYLENE GLYCOL 3350
     Indication: Product used for unknown indication
     Dosage: 17 GRAM (ONE EVERY 24 HOURS)
     Route: 048

REACTIONS (16)
  - Condition aggravated [Unknown]
  - Depression [Unknown]
  - Drug interaction [Unknown]
  - Drug level below therapeutic [Unknown]
  - Drug level decreased [Unknown]
  - Hypoaesthesia [Unknown]
  - Memory impairment [Unknown]
  - Mental disorder [Unknown]
  - Somnolence [Unknown]
  - Thinking abnormal [Unknown]
  - Confusional state [Unknown]
  - Treatment noncompliance [Unknown]
  - Constipation [Unknown]
  - Dysphemia [Unknown]
  - Fatigue [Unknown]
  - Sedation [Unknown]
